FAERS Safety Report 18512649 (Version 2)
Quarter: 2020Q4

REPORT INFORMATION
  Report Type: Spontaneous
  Country: US (occurrence: US)
  Receive Date: 20201117
  Receipt Date: 20201221
  Transmission Date: 20210114
  Serious: No
  Sender: FDA-Public Use
  Company Number: US-VERTEX PHARMACEUTICALS-2020-022556

PATIENT
  Age: 12 Year
  Sex: Female
  Weight: 46 kg

DRUGS (5)
  1. TRIKAFTA [Suspect]
     Active Substance: ELEXACAFTOR\IVACAFTOR\TEZACAFTOR
     Indication: CYSTIC FIBROSIS
     Dosage: 2 ORANGE TABS (100MG ELEXA/ 50MG TEZA/ 75MG IVA) AM ; 1 BLE TAB (150MG IVA) PM
     Route: 048
     Dates: start: 20200527
  2. PULMOZYME [Concomitant]
     Active Substance: DORNASE ALFA
     Dosage: UNK
  3. VITAMIN D [COLECALCIFEROL] [Concomitant]
     Active Substance: CHOLECALCIFEROL
     Dosage: UNK
  4. CREON [Concomitant]
     Active Substance: PANCRELIPASE AMYLASE\PANCRELIPASE LIPASE\PANCRELIPASE PROTEASE
     Dosage: UNK
  5. HYPERSAL [Concomitant]
     Active Substance: SODIUM CHLORIDE

REACTIONS (3)
  - Hordeolum [Recovering/Resolving]
  - Chalazion [Not Recovered/Not Resolved]
  - Infected dermal cyst [Unknown]

NARRATIVE: CASE EVENT DATE: 202007
